FAERS Safety Report 11632709 (Version 2)
Quarter: 2015Q4

REPORT INFORMATION
  Report Type: Spontaneous
  Country: NL (occurrence: NL)
  Receive Date: 20151015
  Receipt Date: 20151015
  Transmission Date: 20160304
  Serious: Yes (Other)
  Sender: FDA-Public Use
  Company Number: NL-SA-2015SA160038

PATIENT
  Age: 16 Year
  Sex: Female
  Weight: 55 kg

DRUGS (2)
  1. SELSUN [Suspect]
     Active Substance: SELENIUM SULFIDE
     Indication: TINEA VERSICOLOUR
     Dosage: DOSE: APPLICATE ON SPOTS?STRENGTH:25 MG/ML
     Route: 003
     Dates: start: 201509, end: 201509
  2. IBUPROFEN. [Concomitant]
     Active Substance: IBUPROFEN
     Dosage: STRENGTH: 200 MG, DOSE: 2 DD 2
     Route: 048
     Dates: start: 200503

REACTIONS (1)
  - Dermatitis bullous [Recovering/Resolving]

NARRATIVE: CASE EVENT DATE: 201509
